FAERS Safety Report 19312293 (Version 1)
Quarter: 2021Q2

REPORT INFORMATION
  Report Type: Spontaneous
  Country: US (occurrence: US)
  Receive Date: 20210526
  Receipt Date: 20210526
  Transmission Date: 20210717
  Serious: No
  Sender: FDA-Public Use
  Company Number: None

PATIENT
  Age: 87 Year
  Sex: Male
  Weight: 87 kg

DRUGS (2)
  1. ACETAMINOPHEN (ACETAMINOPHEN 325MG TAB) [Suspect]
     Active Substance: ACETAMINOPHEN
     Indication: ATRIAL FIBRILLATION
     Route: 048
     Dates: start: 20210410, end: 20210505
  2. IBUPROFEN (IBUPROFEN 200MG TAB) [Suspect]
     Active Substance: IBUPROFEN
     Indication: PAIN
     Dates: end: 20200614

REACTIONS (4)
  - Gastric ulcer [None]
  - Upper gastrointestinal haemorrhage [None]
  - Faeces discoloured [None]
  - Gastric haemorrhage [None]

NARRATIVE: CASE EVENT DATE: 20210412
